FAERS Safety Report 22602903 (Version 1)
Quarter: 2023Q2

REPORT INFORMATION
  Report Type: Spontaneous
  Country: US (occurrence: US)
  Receive Date: 20230615
  Receipt Date: 20230615
  Transmission Date: 20230722
  Serious: Yes (Hospitalization)
  Sender: FDA-Public Use
  Company Number: US-IMMUNOGEN, INC.-US-IMGN-23-00305

PATIENT
  Age: 67 Year
  Sex: Female
  Weight: 52.39 kg

DRUGS (1)
  1. ELAHERE [Suspect]
     Active Substance: MIRVETUXIMAB SORAVTANSINE-GYNX
     Indication: Ovarian cancer
     Dosage: 330 MILLIGRAM, 3W
     Route: 042
     Dates: start: 20230322

REACTIONS (2)
  - Fall [Unknown]
  - Femur fracture [Unknown]
